FAERS Safety Report 6243291-7 (Version None)
Quarter: 2009Q2

REPORT INFORMATION
  Report Type: 
  Country: None (occurrence: None)
  Receive Date: 20090622
  Receipt Date: 20090622
  Transmission Date: 20091009
  Serious: No
  Sender: FDA-Public Use
  Company Number: None

PATIENT
  Age: 51 Year
  Sex: Male
  Weight: 83.9154 kg

DRUGS (2)
  1. ZICAM GEL SWABS ZICAM LLC [Suspect]
     Indication: NASOPHARYNGITIS
     Dosage: 1 SWAB EVERY 4 HOURS ENDOSINUSIAL
     Route: 006
     Dates: start: 20040526, end: 20090601
  2. ZICAM PUMP SPRAY ZICAM LLC [Suspect]
     Indication: NASOPHARYNGITIS
     Dates: start: 20040529, end: 20090601

REACTIONS (1)
  - ANOSMIA [None]
